FAERS Safety Report 18682698 (Version 1)
Quarter: 2020Q4

REPORT INFORMATION
  Report Type: Report from Study
  Country: AR (occurrence: AR)
  Receive Date: 20201229
  Receipt Date: 20201229
  Transmission Date: 20210114
  Serious: Yes (Hospitalization)
  Sender: FDA-Public Use
  Company Number: AR-JNJFOC-20200736707

PATIENT
  Age: 46 Year
  Sex: Female
  Weight: 61 kg

DRUGS (13)
  1. VITAMIN D                          /00107901/ [Concomitant]
     Active Substance: ERGOCALCIFEROL
     Dosage: 400
     Route: 048
     Dates: start: 20190909
  2. LEVOTHYROXINE. [Concomitant]
     Active Substance: LEVOTHYROXINE
     Indication: HYPOTHYROIDISM
     Route: 048
     Dates: start: 20181101
  3. CLARITHROMYCIN. [Concomitant]
     Active Substance: CLARITHROMYCIN
     Route: 048
     Dates: start: 20200304
  4. METRONIDAZOLE. [Concomitant]
     Active Substance: METRONIDAZOLE
     Route: 048
     Dates: start: 20200601
  5. PLACEBO [Suspect]
     Active Substance: UNSPECIFIED INGREDIENT
     Indication: SYSTEMIC LUPUS ERYTHEMATOSUS
     Route: 058
     Dates: start: 20200114, end: 20200512
  6. ACENOCOUMAROL [Concomitant]
     Active Substance: ACENOCOUMAROL
     Route: 048
     Dates: start: 20150903
  7. ENOXAPARIN [Concomitant]
     Active Substance: ENOXAPARIN
     Indication: THROMBOSIS PROPHYLAXIS
     Route: 065
  8. HYDROXYCHLOROQUINE [Concomitant]
     Active Substance: HYDROXYCHLOROQUINE
     Route: 048
     Dates: start: 20030815
  9. CALCIUM CITRATE [Concomitant]
     Active Substance: CALCIUM CITRATE
     Route: 048
     Dates: start: 20190909
  10. MEPREDNISONE [Concomitant]
     Active Substance: MEPREDNISONE
     Route: 048
     Dates: start: 20030815
  11. ASPRIN [Concomitant]
     Active Substance: ASPIRIN
     Route: 048
     Dates: start: 20030926
  12. DESLORATADINE. [Concomitant]
     Active Substance: DESLORATADINE
     Route: 048
     Dates: start: 20200304
  13. FLUTICASONE. [Concomitant]
     Active Substance: FLUTICASONE
     Dosage: PUFF
     Dates: start: 20200304

REACTIONS (1)
  - Systemic lupus erythematosus [Recovered/Resolved]

NARRATIVE: CASE EVENT DATE: 20200721
